FAERS Safety Report 5224961-6 (Version None)
Quarter: 2007Q1

REPORT INFORMATION
  Report Type: 
  Country: None (occurrence: None)
  Receive Date: 20070126
  Receipt Date: 20070115
  Transmission Date: 20070707
  Serious: Yes (Hospitalization)
  Sender: FDA-Public Use
  Company Number: HQWYE732417JAN07

PATIENT
  Age: 13 Year
  Sex: Female

DRUGS (2)
  1. EFFEXOR XR [Suspect]
     Dosage: ^OVERDOSE AMOUNT 375 MG^
     Route: 048
     Dates: start: 20040501, end: 20040501
  2. PAROXETINE [Suspect]
     Dosage: 200 MG OVERDOSE AMOUNT
     Dates: start: 20040501, end: 20040501

REACTIONS (2)
  - OVERDOSE [None]
  - URINARY RETENTION [None]
